FAERS Safety Report 20751255 (Version 1)
Quarter: 2022Q2

REPORT INFORMATION
  Report Type: Spontaneous
  Country: US (occurrence: US)
  Receive Date: 20220426
  Receipt Date: 20220426
  Transmission Date: 20220721
  Serious: Yes (Other)
  Sender: FDA-Public Use
  Company Number: US-PFIZER INC-202101523599

PATIENT
  Age: 47 Year
  Sex: Female
  Weight: 91.44 kg

DRUGS (16)
  1. GABAPENTIN [Suspect]
     Active Substance: GABAPENTIN
     Dosage: 100 MG
  2. GABAPENTIN [Suspect]
     Active Substance: GABAPENTIN
     Dosage: 1 CAPSULE QHS X 3 DAYS
  3. GABAPENTIN [Suspect]
     Active Substance: GABAPENTIN
     Dosage: 1 CAPSULE Q NOON AND 1 CAPSULE QHSX 3 DAYS
  4. GABAPENTIN [Suspect]
     Active Substance: GABAPENTIN
     Dosage: 1 CAPSULE QHS
  5. GABAPENTIN [Suspect]
     Active Substance: GABAPENTIN
     Dosage: 1 CAPSULE Q NOON AND 1 CAPSULE QAM X 3 DAYS
  6. GABAPENTIN [Suspect]
     Active Substance: GABAPENTIN
     Dosage: 2 CAPSULES QHS
  7. GABAPENTIN [Suspect]
     Active Substance: GABAPENTIN
     Dosage: 1 CAPSULE Q NOON AND 1 CAPSULE GAM X 3 DAYS
  8. GABAPENTIN [Suspect]
     Active Substance: GABAPENTIN
     Dosage: 2 CAPSULES QHS
  9. GABAPENTIN [Suspect]
     Active Substance: GABAPENTIN
     Dosage: 2 CAPSULES Q NOON AND 1 CAPSULE QAM X 3 DAYS
  10. GABAPENTIN [Suspect]
     Active Substance: GABAPENTIN
     Dosage: 2 CAPSULES QHS
  11. GABAPENTIN [Suspect]
     Active Substance: GABAPENTIN
     Dosage: 2 CAPSULES Q NOON AND 2 CAPSULES QAM X 3 DAYS
  12. GABAPENTIN [Suspect]
     Active Substance: GABAPENTIN
     Dosage: 3 CAPSULES QHS, 2 CAPSULES Q NOON AND 2 CAPSULES GAM X 2 DAYS
  13. GABAPENTIN [Suspect]
     Active Substance: GABAPENTIN
     Dosage: 3 CAPSULES QHS
  14. GABAPENTIN [Suspect]
     Active Substance: GABAPENTIN
     Dosage: 3 CAPSULES Q NOON AND 2 CAPSULES QAM X 3 DAYS
  15. GABAPENTIN [Suspect]
     Active Substance: GABAPENTIN
     Dosage: 3 CAPSULES QHS
  16. GABAPENTIN [Suspect]
     Active Substance: GABAPENTIN
     Dosage: 3 CAPSULES Q NOON AND 3 CAPSULES GAM X 3 DAYS

REACTIONS (1)
  - Thrombosis [Recovered/Resolved]

NARRATIVE: CASE EVENT DATE: 20211001
